FAERS Safety Report 15475358 (Version 1)
Quarter: 2018Q4

REPORT INFORMATION
  Report Type: Spontaneous
  Country: US (occurrence: US)
  Receive Date: 20181008
  Receipt Date: 20181008
  Transmission Date: 20190205
  Serious: No
  Sender: FDA-Public Use
  Company Number: US-SA-2018SA273947

PATIENT
  Sex: Female

DRUGS (2)
  1. MIRALAX [Concomitant]
     Active Substance: POLYETHYLENE GLYCOL 3350
     Dosage: UNK UNK, QD
  2. DULCOLAX PINK [Suspect]
     Active Substance: BISACODYL
     Indication: COLONOSCOPY
     Dosage: 2 DF, BID

REACTIONS (1)
  - Nausea [Unknown]
